FAERS Safety Report 20713699 (Version 3)
Quarter: 2022Q2

REPORT INFORMATION
  Report Type: Spontaneous
  Country: FI (occurrence: FI)
  Receive Date: 20220415
  Receipt Date: 20220509
  Transmission Date: 20220721
  Serious: No
  Sender: FDA-Public Use
  Company Number: FI-JNJFOC-20220348271

PATIENT

DRUGS (4)
  1. SIMPONI [Suspect]
     Active Substance: GOLIMUMAB
     Indication: Product used for unknown indication
     Dosage: 50.00 MG / 0.50 ML
     Route: 058
  2. LEVOTHYROXINE [Concomitant]
     Active Substance: LEVOTHYROXINE
     Indication: Hypothyroidism
  3. ENALAPRIL MALEATE [Concomitant]
     Active Substance: ENALAPRIL MALEATE
     Indication: Hypertension
  4. CALCIUM CARBONATE [Concomitant]
     Active Substance: CALCIUM CARBONATE

REACTIONS (8)
  - Syringe issue [Unknown]
  - Device malfunction [Unknown]
  - Erythema [Recovered/Resolved]
  - Pain [Recovered/Resolved]
  - Feeling hot [Recovered/Resolved]
  - Paraesthesia [Unknown]
  - Product dose omission issue [Unknown]
  - Accidental exposure to product [Unknown]
